FAERS Safety Report 6570243-X (Version None)
Quarter: 2010Q1

REPORT INFORMATION
  Report Type: 
  Country: None (occurrence: None)
  Receive Date: 20100202
  Receipt Date: 20100202
  Transmission Date: 20100710
  Serious: Yes (Disabling)
  Sender: FDA-Public Use
  Company Number: None

PATIENT
  Age: 35 Year
  Sex: Female
  Weight: 60.782 kg

DRUGS (4)
  1. ZICAM COLD REMEDY NASAL SPRAY GEL 0.50 FL OZ/15 ML [Suspect]
     Indication: NASOPHARYNGITIS
     Dosage: 1-2 SPRAY IN EACH NOSE 2X DAY
     Route: 045
     Dates: start: 20070201
  2. ZICAM COLD REMEDY NASAL SPRAY GEL 0.50 FL OZ/15 ML [Suspect]
     Indication: SINUS DISORDER
     Dosage: 1-2 SPRAY IN EACH NOSE 2X DAY
     Route: 045
     Dates: start: 20070201
  3. ZICAM COLD REMEDY GEL SWAB (LOT 295318) [Suspect]
     Indication: NASOPHARYNGITIS
     Dosage: SWAB EA NOSE 2X DAY
     Route: 045
     Dates: start: 20070201
  4. ZICAM COLD REMEDY GEL SWAB (LOT 295318) [Suspect]
     Indication: SINUS DISORDER
     Dosage: SWAB EA NOSE 2X DAY
     Route: 045
     Dates: start: 20070201

REACTIONS (2)
  - AGEUSIA [None]
  - ANOSMIA [None]
